FAERS Safety Report 4963341-5 (Version None)
Quarter: 2006Q2

REPORT INFORMATION
  Report Type: 
  Country: None (occurrence: None)
  Receive Date: 20060404
  Receipt Date: 20060404
  Transmission Date: 20061013
  Serious: Yes (Hospitalization)
  Sender: FDA-Public Use
  Company Number: None

PATIENT
  Age: 28 Year
  Sex: Male

DRUGS (1)
  1. TRAMADOL HCL [Suspect]
     Dosage: 50 MG PO QTD PRN
     Route: 048
     Dates: start: 20060208, end: 20060210

REACTIONS (8)
  - CONFUSIONAL STATE [None]
  - DRUG HYPERSENSITIVITY [None]
  - HYPERHIDROSIS [None]
  - NAUSEA [None]
  - PARAESTHESIA [None]
  - RETCHING [None]
  - VISION BLURRED [None]
  - VOMITING [None]
